FAERS Safety Report 11263812 (Version 1)
Quarter: 2015Q3

REPORT INFORMATION
  Report Type: Spontaneous
  Country: US (occurrence: US)
  Receive Date: 20150713
  Receipt Date: 20150713
  Transmission Date: 20151125
  Serious: No
  Sender: FDA-Public Use
  Company Number: US-JNJFOC-20150610928

PATIENT
  Age: 55 Year
  Sex: Male

DRUGS (3)
  1. NIZORAL A-D [Suspect]
     Active Substance: KETOCONAZOLE
     Indication: SEBORRHOEA
     Route: 061
     Dates: start: 20150608, end: 20150608
  2. NIZORAL A-D [Suspect]
     Active Substance: KETOCONAZOLE
     Indication: HAIR DISORDER
     Route: 061
     Dates: start: 20150608, end: 20150608
  3. NIZORAL A-D [Suspect]
     Active Substance: KETOCONAZOLE
     Indication: ALOPECIA
     Route: 061
     Dates: start: 20150608, end: 20150608

REACTIONS (2)
  - Product tampering [Unknown]
  - Product use issue [Unknown]
